FAERS Safety Report 20976753 (Version 1)
Quarter: 2022Q2

REPORT INFORMATION
  Report Type: Spontaneous
  Country: US (occurrence: US)
  Receive Date: 20220617
  Receipt Date: 20220617
  Transmission Date: 20220721
  Serious: Yes (Other)
  Sender: FDA-Public Use
  Company Number: US-BAXTER-2022BAX012199

PATIENT

DRUGS (1)
  1. INSULIN NOS [Suspect]
     Active Substance: INSULIN NOS
     Dosage: 100 IU
     Route: 041
     Dates: start: 20220510

REACTIONS (3)
  - Hyperglycaemia [Unknown]
  - Device malfunction [Unknown]
  - Device infusion issue [Unknown]

NARRATIVE: CASE EVENT DATE: 20220510
